FAERS Safety Report 8347487-X (Version None)
Quarter: 2012Q2

REPORT INFORMATION
  Report Type: 
  Country: None (occurrence: None)
  Receive Date: 20120509
  Receipt Date: 20120430
  Transmission Date: 20120825
  Serious: Yes (Other)
  Sender: FDA-Public Use
  Company Number: CA-JNJFOC-20120501073

PATIENT
  Sex: Female
  Weight: 76.1 kg

DRUGS (4)
  1. REMICADE [Suspect]
     Route: 042
     Dates: start: 20090801
  2. REMICADE [Suspect]
     Indication: CROHN'S DISEASE
     Dosage: 26TH INFUSION
     Route: 042
     Dates: start: 20120430
  3. VITAMIN D [Concomitant]
     Route: 065
  4. IMURAN [Concomitant]
     Route: 048

REACTIONS (1)
  - FISTULA [None]
